FAERS Safety Report 22338489 (Version 1)
Quarter: 2023Q2

REPORT INFORMATION
  Report Type: Spontaneous
  Country: CO (occurrence: CO)
  Receive Date: 20230518
  Receipt Date: 20230518
  Transmission Date: 20230722
  Serious: Yes (Hospitalization)
  Sender: FDA-Public Use
  Company Number: CO-ORG100014127-2022001413

PATIENT
  Age: 64 Year
  Sex: Male
  Weight: 77 kg

DRUGS (8)
  1. MITOTANE [Suspect]
     Active Substance: MITOTANE
     Indication: Adrenocortical carcinoma
     Dosage: 3000MG EVERY 24 HOURS
     Route: 048
     Dates: start: 20221012
  2. MITOTANE [Suspect]
     Active Substance: MITOTANE
     Indication: Adrenocortical carcinoma
     Dosage: 4500MG EVERY 24 HOURS
     Route: 048
  3. VERAPAMIL [Concomitant]
     Active Substance: VERAPAMIL HYDROCHLORIDE
     Indication: Product used for unknown indication
     Dates: start: 2017
  4. valsartan+hydrochlorothiazide 160/12.5 mg [Concomitant]
     Indication: Product used for unknown indication
     Dates: start: 2017
  5. Vitamin D 2000IU [Concomitant]
     Indication: Product used for unknown indication
     Dates: start: 2017
  6. Vitamin B12 5000mcg/ml [Concomitant]
     Indication: Product used for unknown indication
     Dosage: EVERY 24 HOURS APPLY 1 ML UNDER THE TONGUE, LEAVE FOR 30 SECONDS AND THEN SWALLOW
     Dates: start: 2017
  7. Esomeprazole tablet 20 mg [Concomitant]
     Indication: Product used for unknown indication
     Dates: start: 2017
  8. FOLIC ACID [Concomitant]
     Active Substance: FOLIC ACID
     Indication: Product used for unknown indication
     Dosage: 5MG TABLET EVERY 24 HOURS
     Dates: start: 2017

REACTIONS (2)
  - Stress cardiomyopathy [Not Recovered/Not Resolved]
  - Vertigo [Recovered/Resolved]

NARRATIVE: CASE EVENT DATE: 20221201
